FAERS Safety Report 10380762 (Version 1)
Quarter: 2014Q3

REPORT INFORMATION
  Report Type: Report from Study
  Country: GB (occurrence: GB)
  Receive Date: 20140813
  Receipt Date: 20140813
  Transmission Date: 20150326
  Serious: Yes (Other)
  Sender: FDA-Public Use
  Company Number: GB-ASTELLAS-2014EU010613

PATIENT
  Sex: Female

DRUGS (1)
  1. MIRABEGRON [Suspect]
     Active Substance: MIRABEGRON
     Indication: HYPERTONIC BLADDER
     Route: 065

REACTIONS (8)
  - Abdominal distension [Unknown]
  - Peripheral swelling [Unknown]
  - Reflux gastritis [Unknown]
  - Palpitations [Unknown]
  - Pruritus [Unknown]
  - Headache [Unknown]
  - Tachycardia [Unknown]
  - Urinary tract infection [Unknown]
